FAERS Safety Report 18818046 (Version 1)
Quarter: 2021Q1

REPORT INFORMATION
  Report Type: Spontaneous
  Country: US (occurrence: US)
  Receive Date: 20210202
  Receipt Date: 20210202
  Transmission Date: 20210419
  Serious: Yes (Other)
  Sender: FDA-Public Use
  Company Number: US-009507513-2101USA013471

PATIENT
  Sex: Male

DRUGS (4)
  1. SARS?COV?2 VACCINE (UNSPECIFIED) [Concomitant]
     Dosage: UNK
     Route: 030
     Dates: start: 20210106
  2. SARS?COV?2 VACCINE (UNSPECIFIED) [Concomitant]
     Dosage: UNK DOSAGE FORM
     Route: 030
     Dates: start: 20201218
  3. KEYTRUDA [Suspect]
     Active Substance: PEMBROLIZUMAB
     Indication: MALIGNANT NEOPLASM OF THYMUS
     Dosage: UNK
     Dates: start: 20201201
  4. KEYTRUDA [Suspect]
     Active Substance: PEMBROLIZUMAB
     Dosage: UNK
     Dates: start: 20201222

REACTIONS (1)
  - Haemolytic anaemia [Not Recovered/Not Resolved]

NARRATIVE: CASE EVENT DATE: 20210107
